FAERS Safety Report 24236113 (Version 2)
Quarter: 2024Q3

REPORT INFORMATION
  Report Type: Report from Study
  Country: US (occurrence: US)
  Receive Date: 20240822
  Receipt Date: 20240909
  Transmission Date: 20241016
  Serious: No
  Sender: DECIPHERA PHARMACEUTICALS
  Company Number: US-DECIPHERA PHARMACEUTICALS LLC-2024US000686

PATIENT
  Age: 66 Year
  Sex: Female

DRUGS (3)
  1. QINLOCK [Suspect]
     Active Substance: RIPRETINIB
     Indication: Gastrointestinal stromal tumour
     Dosage: 100 MILLIGRAM, QD
     Route: 048
     Dates: start: 20240710, end: 2024
  2. QINLOCK [Suspect]
     Active Substance: RIPRETINIB
     Dosage: 50 MILLIGRAM, QD
     Route: 048
     Dates: start: 2024, end: 2024
  3. ORSERDU [Concomitant]
     Active Substance: ELACESTRANT
     Indication: Product used for unknown indication
     Dosage: 345 MILLIGRAM, QD
     Route: 048

REACTIONS (9)
  - Adverse event [Unknown]
  - Blood pressure abnormal [Unknown]
  - Dizziness [Unknown]
  - Dysphonia [Unknown]
  - Amnesia [Unknown]
  - Pain [Unknown]
  - Fall [Unknown]
  - Vomiting [Unknown]
  - Prescribed underdose [Unknown]

NARRATIVE: CASE EVENT DATE: 20240101
